FAERS Safety Report 23700744 (Version 1)
Quarter: 2024Q2

REPORT INFORMATION
  Report Type: Spontaneous
  Country: CL (occurrence: CL)
  Receive Date: 20240403
  Receipt Date: 20240403
  Transmission Date: 20240716
  Serious: Yes (Hospitalization)
  Sender: FDA-Public Use
  Company Number: CL-002147023-NVSC2022CL246223

PATIENT
  Age: 48 Year
  Sex: Female

DRUGS (6)
  1. KISQALI [Suspect]
     Active Substance: RIBOCICLIB
     Dosage: 600 MG, QD
     Route: 048
  2. KISQALI [Suspect]
     Active Substance: RIBOCICLIB
     Indication: Breast cancer
     Dosage: 600 MG, QD (3 TABLETS EVERY 1 DAY FOR 3 WEEKS) (TAKE FOR 21 DAYS AND REST 7 DAYS)
     Route: 048
     Dates: start: 20221017
  3. KISQALI [Suspect]
     Active Substance: RIBOCICLIB
     Dosage: 600 MG
     Route: 065
     Dates: start: 20230612
  4. LETROZOLE [Suspect]
     Active Substance: LETROZOLE
     Indication: Product used for unknown indication
     Dosage: 2.5 MG
     Route: 065
  5. ZOLEDRONIC ACID [Suspect]
     Active Substance: ZOLEDRONIC ACID
     Indication: Product used for unknown indication
     Dosage: 4 MG, Q3MO
     Route: 065
  6. TRIPTORELIN [Concomitant]
     Active Substance: TRIPTORELIN
     Indication: Product used for unknown indication
     Dosage: UNK, QMO
     Route: 065

REACTIONS (4)
  - Neoplasm [Unknown]
  - Pain [Unknown]
  - Nausea [Recovered/Resolved]
  - Headache [Recovered/Resolved]
